FAERS Safety Report 7025822-2 (Version None)
Quarter: 2010Q4

REPORT INFORMATION
  Report Type: 
  Country: None (occurrence: None)
  Receive Date: 20101004
  Receipt Date: 20100924
  Transmission Date: 20110411
  Serious: Yes (Hospitalization)
  Sender: FDA-Public Use
  Company Number: 202000

PATIENT
  Sex: Female
  Weight: 68 kg

DRUGS (5)
  1. AVONEX [Suspect]
     Indication: MULTIPLE SCLEROSIS
     Route: 030
     Dates: start: 19960101, end: 20030801
  2. AVONEX [Suspect]
     Route: 030
     Dates: start: 20030801
  3. CHOLESTEROL MEDICATION (NOS) [Concomitant]
     Indication: HYPERCHOLESTEROLAEMIA
  4. POTASSIUM [Concomitant]
     Indication: PRODUCT USED FOR UNKNOWN INDICATION
  5. PROTONIX [Concomitant]
     Indication: GASTRIC DISORDER

REACTIONS (5)
  - CONCUSSION [None]
  - HEAD INJURY [None]
  - MULTIPLE SCLEROSIS [None]
  - SPINAL FUSION SURGERY [None]
  - SURGERY [None]
